FAERS Safety Report 21652135 (Version 1)
Quarter: 2022Q4

REPORT INFORMATION
  Report Type: Spontaneous
  Country: ES (occurrence: ES)
  Receive Date: 20221128
  Receipt Date: 20221128
  Transmission Date: 20230112
  Serious: Yes (Hospitalization)
  Sender: FDA-Public Use
  Company Number: None

PATIENT
  Age: 79 Year
  Sex: Male

DRUGS (6)
  1. LORAZEPAM [Suspect]
     Active Substance: LORAZEPAM
     Indication: Insomnia
     Dosage: 1 MG, DAILY (1.0MG/24H)
     Route: 048
     Dates: start: 20220415, end: 20220420
  2. OMEPRAZOL TARBIS [Concomitant]
     Indication: Product used for unknown indication
     Dosage: 20 MG, DAILY (BEFORE BREAKFAST)
     Route: 048
     Dates: start: 20191008
  3. FUROSEMIDE [Concomitant]
     Active Substance: FUROSEMIDE
     Indication: Essential hypertension
     Dosage: 40 MG, DAILY (AT BREAKFAST)
     Route: 048
     Dates: start: 20200212
  4. CALCIFEDIOL [Concomitant]
     Active Substance: CALCIFEDIOL
     Indication: Vitamin D decreased
     Dosage: MG IRREGULAR
     Route: 048
     Dates: start: 20210903
  5. ATORVASTATIN [Concomitant]
     Active Substance: ATORVASTATIN
     Indication: Hypercholesterolaemia
     Dosage: 10 MG, DAILY (AT DINNER)
     Route: 048
     Dates: start: 20200609
  6. CYANOCOBALAMIN\FOLIC ACID [Concomitant]
     Active Substance: CYANOCOBALAMIN\FOLIC ACID
     Indication: Anaemia
     Dosage: 1 DF, DAILY (1 TABLET/EVERY 24H)
     Route: 048
     Dates: start: 20150513

REACTIONS (2)
  - Anaemia [Recovered/Resolved]
  - Cognitive disorder [Recovered/Resolved]

NARRATIVE: CASE EVENT DATE: 20220422
